FAERS Safety Report 5514915-4 (Version None)
Quarter: 2007Q4

REPORT INFORMATION
  Report Type: 
  Country: None (occurrence: None)
  Receive Date: 20071113
  Receipt Date: 20061002
  Transmission Date: 20080405
  Serious: No
  Sender: FDA-Public Use
  Company Number: A0622139A

PATIENT
  Age: 51 Year
  Sex: Male

DRUGS (8)
  1. COREG [Suspect]
     Dosage: 25MG TWICE PER DAY
     Route: 048
     Dates: start: 20060630
  2. LASIX [Concomitant]
  3. GLUCOPHAGE [Concomitant]
  4. VASOTEC [Concomitant]
  5. STARLIX [Concomitant]
  6. SPIRONOLACTONE [Concomitant]
  7. AVAPRO [Concomitant]
  8. ASPIRIN [Concomitant]

REACTIONS (2)
  - DIZZINESS [None]
  - SOMNOLENCE [None]
